FAERS Safety Report 6367370-9 (Version None)
Quarter: 2009Q3

REPORT INFORMATION
  Report Type: 
  Country: None (occurrence: None)
  Receive Date: 20090921
  Receipt Date: 20080304
  Transmission Date: 20100115
  Serious: Yes (Other)
  Sender: FDA-Public Use
  Company Number: A0704595A

PATIENT
  Age: 44 Year
  Sex: Female

DRUGS (7)
  1. ADVAIR HFA [Suspect]
     Indication: PNEUMONIA
     Dosage: 1PUFF TWICE PER DAY
     Route: 055
     Dates: start: 20071101, end: 20080211
  2. PREDNISONE [Concomitant]
  3. ASPIRIN [Concomitant]
  4. ZYRTEC [Concomitant]
     Dosage: 10U PER DAY
  5. XOPENEX [Concomitant]
  6. PLAQUENIL [Concomitant]
  7. ZANTAC [Concomitant]

REACTIONS (4)
  - DRUG INEFFECTIVE [None]
  - PRODUCT QUALITY ISSUE [None]
  - SLUGGISHNESS [None]
  - SYSTEMIC LUPUS ERYTHEMATOSUS [None]
